FAERS Safety Report 5208301-4 (Version None)
Quarter: 2007Q1

REPORT INFORMATION
  Report Type: 
  Country: None (occurrence: None)
  Receive Date: 20070110
  Receipt Date: 20070110
  Transmission Date: 20070707
  Serious: Yes (Hospitalization, Disabling)
  Sender: FDA-Public Use
  Company Number: None

PATIENT
  Age: 89 Year
  Sex: Female
  Weight: 42 kg

DRUGS (9)
  1. MEMENTINE 10MG [Suspect]
     Indication: DEMENTIA
     Dosage: 10MG BID PO
     Route: 048
  2. ALPRAZOLAM [Concomitant]
  3. ATORVASTATIN CALCIUM [Concomitant]
  4. CITALOPRAM HYDROBROMIDE [Concomitant]
  5. CYANOCOBALAMIN [Concomitant]
  6. HYDROCHLOROTHIAZIDE [Concomitant]
  7. LEVALBUTERAL [Concomitant]
  8. NEBULIZED METOPROLOL [Concomitant]
  9. PANTOPRAZOLE SODIUM [Concomitant]

REACTIONS (4)
  - CONVULSION [None]
  - DYSKINESIA [None]
  - FALL [None]
  - HYPERTONIA [None]
